FAERS Safety Report 5530106-5 (Version None)
Quarter: 2007Q4

REPORT INFORMATION
  Report Type: 
  Country: None (occurrence: None)
  Receive Date: 20071130
  Receipt Date: 20071119
  Transmission Date: 20080405
  Serious: Yes (Other)
  Sender: FDA-Public Use
  Company Number: PHHY2007BR00549

PATIENT
  Age: 54 Year
  Sex: Male
  Weight: 75 kg

DRUGS (7)
  1. GLIMEPIRIDE [Concomitant]
     Indication: DIABETES MELLITUS
     Dosage: 6 MG, QD
     Route: 048
  2. ENALAPRIL [Concomitant]
     Indication: HYPERTENSION
     Dosage: 5 MG, BID
     Route: 048
  3. SIMVASTATIN [Concomitant]
     Indication: BLOOD CHOLESTEROL
     Dosage: 0.5 MG, QD
     Route: 048
  4. ALPRAZOLAM [Concomitant]
     Indication: ANXIETY
     Dosage: 0.25 MG, QHS
     Route: 048
  5. DIGOXIN [Concomitant]
     Dosage: 0.25 MG, QD
     Route: 048
  6. GALVUS MET [Suspect]
     Indication: DIABETES MELLITUS
     Dosage: 1 TAB VILDAGLIPTIN + 2 TABS METFORMIN
     Route: 048
     Dates: start: 20070701
  7. ACUPUNCTURE [Suspect]

REACTIONS (1)
  - HYPERGLYCAEMIA [None]
